FAERS Safety Report 11766847 (Version 1)
Quarter: 2015Q4

REPORT INFORMATION
  Report Type: Spontaneous
  Country: US (occurrence: None)
  Receive Date: 20151120
  Receipt Date: 20151120
  Transmission Date: 20160304
  Serious: No
  Sender: FDA-Public Use
  Company Number: None

PATIENT
  Age: 68 Year
  Sex: Female

DRUGS (9)
  1. GABBAPENTIN [Concomitant]
  2. DIVALPROEX [Concomitant]
     Active Substance: DIVALPROEX SODIUM
  3. OMEPRAZOLE. [Concomitant]
     Active Substance: OMEPRAZOLE
  4. INLYTA [Suspect]
     Active Substance: AXITINIB
     Indication: MALIGNANT URINARY TRACT NEOPLASM
     Route: 048
     Dates: start: 20140419
  5. CLINDAMYCIN [Concomitant]
     Active Substance: CLINDAMYCIN\CLINDAMYCIN PHOSPHATE
  6. BENADRYL [Concomitant]
     Active Substance: DIPHENHYDRAMINE HYDROCHLORIDE
  7. FLEXERALL [Concomitant]
  8. HYDROCODONE [Concomitant]
     Active Substance: HYDROCODONE
  9. AMITRIPTYLINE [Concomitant]
     Active Substance: AMITRIPTYLINE

REACTIONS (2)
  - Rectal haemorrhage [None]
  - Vascular rupture [None]

NARRATIVE: CASE EVENT DATE: 20150826
